FAERS Safety Report 4439732-8 (Version None)
Quarter: 2004Q3

REPORT INFORMATION
  Report Type: 
  Country: None (occurrence: None)
  Receive Date: 20040831
  Receipt Date: 20040824
  Transmission Date: 20050211
  Serious: Yes (Hospitalization)
  Sender: FDA-Public Use
  Company Number: 2004UW18032

PATIENT
  Age: 25 Year
  Sex: Male

DRUGS (1)
  1. SEROQUEL [Suspect]
     Dosage: 12000 MG ONCE PO
     Route: 048

REACTIONS (7)
  - CONTUSION [None]
  - FALL [None]
  - INTENTIONAL OVERDOSE [None]
  - MONOPLEGIA [None]
  - RHABDOMYOLYSIS [None]
  - SEDATION [None]
  - SPINAL DISORDER [None]
